FAERS Safety Report 4705813-4 (Version None)
Quarter: 2005Q3

REPORT INFORMATION
  Report Type: 
  Country: None (occurrence: None)
  Receive Date: 20050701
  Receipt Date: 20050608
  Transmission Date: 20060218
  Serious: Yes (Death, Other)
  Sender: FDA-Public Use
  Company Number: JP-MERCK-0506USA01499

PATIENT
  Age: 63 Year
  Sex: Female

DRUGS (9)
  1. SOLITA T-3 [Concomitant]
     Route: 042
     Dates: start: 20050506, end: 20050509
  2. NICARDIPINE HCL [Concomitant]
     Indication: CARDIAC FAILURE
     Route: 042
     Dates: start: 20050509, end: 20050510
  3. LASIX [Concomitant]
     Route: 042
     Dates: start: 20050506, end: 20050509
  4. PRIMAXIN [Suspect]
     Indication: PNEUMONIA
     Route: 042
     Dates: start: 20050506, end: 20050511
  5. SULPERAZON [Concomitant]
     Indication: PNEUMONIA
     Route: 042
     Dates: start: 20050504, end: 20050506
  6. REMINARON [Concomitant]
     Indication: DISSEMINATED INTRAVASCULAR COAGULATION
     Route: 042
     Dates: start: 20050504, end: 20050516
  7. HANP [Concomitant]
     Indication: CARDIAC FAILURE
     Route: 042
     Dates: start: 20050505, end: 20050517
  8. LACTEC [Concomitant]
     Route: 042
     Dates: start: 20050504, end: 20050509
  9. ELECTROLYTES (UNSPECIFIED) AND SODIUM LACTATE [Concomitant]
     Route: 042
     Dates: start: 20050504, end: 20050508

REACTIONS (7)
  - CARDIAC ARREST [None]
  - CONVULSION [None]
  - HEPATIC FAILURE [None]
  - PNEUMONIA [None]
  - PULMONARY CONGESTION [None]
  - RESPIRATORY ARREST [None]
  - SHOCK [None]
